FAERS Safety Report 8916727 (Version 3)
Quarter: 2013Q1

REPORT INFORMATION
  Report Type: Spontaneous
  Country: US (occurrence: US)
  Receive Date: 20121120
  Receipt Date: 20130123
  Transmission Date: 20140127
  Serious: Yes (Hospitalization, Other)
  Sender: FDA-Public Use
  Company Number: US-AMGEN-USASP2012073726

PATIENT
  Age: 63 Year
  Sex: Female
  Weight: 104 kg

DRUGS (19)
  1. PROCRIT [Suspect]
     Indication: MYELODYSPLASTIC SYNDROME
     Dosage: UNK
  2. LYRICA [Suspect]
     Indication: NEUROPATHY PERIPHERAL
     Dosage: 100 MG, BID
     Route: 048
     Dates: start: 201203, end: 201203
  3. LYRICA [Suspect]
     Indication: HYPOAESTHESIA
  4. LEVONOX [Suspect]
     Indication: PRODUCT USED FOR UNKNOWN INDICATION
     Dosage: UNK
     Dates: start: 2012
  5. ANTIBIOTICS [Suspect]
     Indication: PRODUCT USED FOR UNKNOWN INDICATION
     Dosage: UNK
     Dates: start: 2012
  6. LEVAQUIN [Suspect]
     Indication: PRODUCT USED FOR UNKNOWN INDICATION
     Dosage: UNK
     Dates: start: 2012, end: 2012
  7. METFORMIN [Concomitant]
     Indication: DIABETES MELLITUS
     Dosage: 1000 MG, BID
  8. ALPRAZOLAM [Concomitant]
     Dosage: 1 MG, AS NEEDED
  9. ALLOPURINOL [Concomitant]
     Dosage: 200 MG, BID
  10. ASPIRIN [Concomitant]
     Dosage: UNK UNK, QD
  11. PROPANOLOL                         /00030001/ [Concomitant]
     Dosage: 225 MG, UNK
     Route: 048
  12. HYDROCODONE [Concomitant]
     Indication: BACK PAIN
     Dosage: AS NEEDED
  13. WARFARIN [Concomitant]
     Dosage: 8.5 MG, QD
  14. RANITIDINE [Concomitant]
     Dosage: 300 MG, QD
     Route: 048
  15. TORSEMIDE [Concomitant]
     Dosage: 20 MG, BID
  16. HYOSCYAMINE [Concomitant]
     Dosage: 0.125 MG, BID
     Route: 060
  17. CARDIZEM                           /00489701/ [Concomitant]
     Dosage: UNK UNK, BID
  18. KLOR-CON [Concomitant]
     Dosage: 20 MEQ, BID
  19. AMITRIPTYLINE [Concomitant]
     Indication: PRODUCT USED FOR UNKNOWN INDICATION
     Dosage: 100 MG, QD
     Dates: start: 2012

REACTIONS (24)
  - Lung infection [Unknown]
  - Kidney infection [Unknown]
  - Facial bones fracture [Unknown]
  - Dehydration [Unknown]
  - Heart rate increased [Unknown]
  - Atrial fibrillation [Unknown]
  - Fall [Unknown]
  - Dysstasia [Unknown]
  - Cerebrovascular accident [Unknown]
  - Pneumonia aspiration [Unknown]
  - Dyspnoea [Unknown]
  - Chronic obstructive pulmonary disease [Unknown]
  - Amnesia [Unknown]
  - Myelodysplastic syndrome [Unknown]
  - Oesophageal disorder [Unknown]
  - Iron deficiency [Unknown]
  - Bedridden [Unknown]
  - Nausea [Unknown]
  - Infection [Unknown]
  - Skin mass [Unknown]
  - Blood glucose decreased [Unknown]
  - Injection site haemorrhage [Unknown]
  - Somnolence [Not Recovered/Not Resolved]
  - Dizziness [Unknown]
